FAERS Safety Report 20514891 (Version 1)
Quarter: 2022Q1

REPORT INFORMATION
  Report Type: Spontaneous
  Country: US (occurrence: US)
  Receive Date: 20220224
  Receipt Date: 20220224
  Transmission Date: 20220423
  Serious: Yes (Hospitalization)
  Sender: FDA-Public Use
  Company Number: US-ELI_LILLY_AND_COMPANY-US202202008634

PATIENT
  Age: 32 Year
  Sex: Male

DRUGS (2)
  1. ETESEVIMAB [Suspect]
     Active Substance: ETESEVIMAB
     Indication: COVID-19
     Dosage: 700 MG, SINGLE
     Route: 041
     Dates: start: 20211210, end: 20211210
  2. BAMLANIVIMAB [Suspect]
     Active Substance: BAMLANIVIMAB
     Indication: COVID-19
     Dosage: 700 MG, SINGLE
     Route: 041
     Dates: start: 20211210, end: 20211210

REACTIONS (5)
  - Dyspnoea [Unknown]
  - Cough [Unknown]
  - Nasal congestion [Unknown]
  - Pain [Unknown]
  - Underdose [Unknown]

NARRATIVE: CASE EVENT DATE: 20211213
